FAERS Safety Report 24325562 (Version 5)
Quarter: 2024Q4

REPORT INFORMATION
  Report Type: Report from Study
  Country: US (occurrence: US)
  Receive Date: 20240917
  Receipt Date: 20241203
  Transmission Date: 20250115
  Serious: Yes (Other)
  Sender: ACADIA PHARMACEUTICALS
  Company Number: US-ACADIA PHARMACEUTICALS INC.-ACA-2024-TRF-005332

PATIENT
  Age: 16 Year
  Sex: Male

DRUGS (3)
  1. DAYBUE [Suspect]
     Active Substance: TROFINETIDE
     Indication: Rett syndrome
     Dosage: 50 MILLILITER, BID
     Route: 048
     Dates: start: 20230712
  2. DAYBUE [Suspect]
     Active Substance: TROFINETIDE
     Dosage: 37.5 ML/BID
     Route: 048
     Dates: start: 20240816
  3. DAYBUE [Suspect]
     Active Substance: TROFINETIDE
     Dosage: 50 MILLILITER, BID
     Dates: start: 20241023

REACTIONS (8)
  - Seizure [Recovering/Resolving]
  - Emotional distress [Not Recovered/Not Resolved]
  - Irritability [Not Recovered/Not Resolved]
  - Dyskinesia [Not Recovered/Not Resolved]
  - Condition aggravated [Not Recovered/Not Resolved]
  - Decreased eye contact [Not Recovered/Not Resolved]
  - Tremor [Recovering/Resolving]
  - Tremor [Not Recovered/Not Resolved]

NARRATIVE: CASE EVENT DATE: 20240701
